FAERS Safety Report 24898749 (Version 1)
Quarter: 2025Q1

REPORT INFORMATION
  Report Type: Spontaneous
  Country: US (occurrence: US)
  Receive Date: 20250129
  Receipt Date: 20250129
  Transmission Date: 20250409
  Serious: No
  Sender: DR REDDYS
  Company Number: US-DRL-USA-USA/2025/01/000810

PATIENT
  Age: 41 Year
  Sex: Female
  Weight: 71.98 kg

DRUGS (1)
  1. JAVYGTOR [Suspect]
     Active Substance: SAPROPTERIN DIHYDROCHLORIDE
     Indication: Phenylketonuria
     Dosage: DISSOLVE THREE POWDER PACKETS IN 6 OUNCES OF WATER AND TAKE ONCE DAILY WITH MEAL AS DIRECTED.
     Route: 048

REACTIONS (3)
  - Gastrointestinal disorder [Unknown]
  - Illness [Unknown]
  - Product dose omission issue [Unknown]
